FAERS Safety Report 4366967-5 (Version None)
Quarter: 2004Q2

REPORT INFORMATION
  Report Type: 
  Country: None (occurrence: None)
  Receive Date: 20040528
  Receipt Date: 20040517
  Transmission Date: 20050107
  Serious: Yes (Other)
  Sender: FDA-Public Use
  Company Number: PHEH2004US05496

PATIENT
  Age: 52 Year
  Sex: Female

DRUGS (6)
  1. ZOMETA [Suspect]
     Indication: METASTASES TO BONE
     Dosage: 4 MG MONTHLY
     Route: 042
     Dates: start: 20011212, end: 20040103
  2. LUPRON [Concomitant]
     Indication: BREAST CANCER
     Dosage: 7.5 MG MONTHLY
     Dates: start: 20001011
  3. OXYCONTIN [Concomitant]
  4. OXYCODONE [Concomitant]
  5. COZAAR [Concomitant]
  6. PAXIL [Concomitant]

REACTIONS (15)
  - ALVEOLOPLASTY [None]
  - ANAEMIA [None]
  - ARTHRALGIA [None]
  - FATIGUE [None]
  - MALAISE [None]
  - MYALGIA [None]
  - NASAL CONGESTION [None]
  - OSTEITIS CONDENSANS [None]
  - OSTEOMYELITIS CHRONIC [None]
  - PAIN [None]
  - RHINORRHOEA [None]
  - SPLENOMEGALY [None]
  - TOOTH EXTRACTION [None]
  - WOUND DEBRIDEMENT [None]
  - WOUND DEHISCENCE [None]
